FAERS Safety Report 8409116-6 (Version None)
Quarter: 2012Q2

REPORT INFORMATION
  Report Type: 
  Country: None (occurrence: None)
  Receive Date: 20120604
  Receipt Date: 20120523
  Transmission Date: 20120825
  Serious: Yes (Hospitalization)
  Sender: FDA-Public Use
  Company Number: US-BAYER-2012-050732

PATIENT
  Age: 74 Year
  Sex: Male
  Weight: 74.39 kg

DRUGS (7)
  1. XARELTO [Interacting]
     Indication: ATRIAL FIBRILLATION
     Dosage: 20 MG, QD
     Route: 048
     Dates: start: 20120427, end: 20120429
  2. ASPIRIN [Suspect]
     Indication: ILL-DEFINED DISORDER
     Dosage: 81 MG, QD
     Route: 048
  3. LIPITOR [Concomitant]
  4. DRONEDARONE HCL [Concomitant]
  5. XARELTO [Interacting]
     Indication: CEREBROVASCULAR ACCIDENT PROPHYLAXIS
  6. XARELTO [Interacting]
  7. TOPROL-XL [Concomitant]

REACTIONS (1)
  - RECTAL HAEMORRHAGE [None]
